FAERS Safety Report 13238136 (Version 1)
Quarter: 2017Q1

REPORT INFORMATION
  Report Type: Spontaneous
  Country: DE (occurrence: DE)
  Receive Date: 20170216
  Receipt Date: 20170216
  Transmission Date: 20170428
  Serious: Yes (Other)
  Sender: FDA-Public Use
  Company Number: DE-009507513-1702DEU005814

PATIENT
  Age: 68 Year
  Sex: Female

DRUGS (1)
  1. ATOZET 10 MG/40 MG [Suspect]
     Active Substance: ATORVASTATIN CALCIUM\EZETIMIBE
     Indication: LIPIDS INCREASED
     Dosage: UNK
     Route: 048
     Dates: start: 20170209

REACTIONS (5)
  - Sleep disorder [Not Recovered/Not Resolved]
  - Laryngeal dyspnoea [Not Recovered/Not Resolved]
  - Pharyngeal oedema [Not Recovered/Not Resolved]
  - Swelling face [Not Recovered/Not Resolved]
  - Oropharyngeal pain [Not Recovered/Not Resolved]

NARRATIVE: CASE EVENT DATE: 20170209
